FAERS Safety Report 6221662-2 (Version None)
Quarter: 2009Q2

REPORT INFORMATION
  Report Type: 
  Country: None (occurrence: None)
  Receive Date: 20090610
  Receipt Date: 20090601
  Transmission Date: 20091009
  Serious: Yes (Other)
  Sender: FDA-Public Use
  Company Number: PHHY2008BR04670

PATIENT
  Age: 56 Year
  Sex: Female
  Weight: 60 kg

DRUGS (5)
  1. DIOVAN HCT [Suspect]
     Indication: HYPERTENSION
     Dosage: 160/25 MG DAILY
     Route: 048
  2. DIOVAN HCT [Suspect]
     Dosage: 5 TABLETS
     Route: 048
     Dates: start: 20090531
  3. DIOVAN HCT [Suspect]
     Dosage: ONE TABLET AND HALF
     Route: 048
  4. DIOVAN HCT [Suspect]
     Dosage: 10 TABLETS
  5. EXFORGE [Suspect]
     Indication: HYPERTENSION
     Dosage: 80/5 MG DAILY
     Route: 048
     Dates: start: 20080303, end: 20080330

REACTIONS (11)
  - ABASIA [None]
  - BALANCE DISORDER [None]
  - BLOOD PRESSURE INADEQUATELY CONTROLLED [None]
  - BLOOD PRESSURE INCREASED [None]
  - DRUG INEFFECTIVE [None]
  - ERYTHEMA [None]
  - HEADACHE [None]
  - RETCHING [None]
  - SENSATION OF PRESSURE [None]
  - TONSILLAR INFLAMMATION [None]
  - URINARY TRACT INFECTION [None]
